FAERS Safety Report 8776436 (Version 1)
Quarter: 2012Q4

REPORT INFORMATION
  Report Type: 
  Country: US (occurrence: US)
  Receive Date: 20120910
  Receipt Date: 20120910
  Transmission Date: 20130627
  Serious: Yes (Hospitalization)
  Sender: FDA-Public Use
  Company Number: PHHY2012US077248

PATIENT
  Age: 46 Year
  Sex: Female

DRUGS (3)
  1. OXYCODONE HYDROCHLORIDE [Suspect]
  2. AMITRIPTYLINE [Suspect]
  3. TRAZODONE [Suspect]

REACTIONS (9)
  - Leukoencephalopathy [Recovered/Resolved]
  - Unresponsive to stimuli [Recovered/Resolved]
  - Respiratory rate decreased [Recovered/Resolved]
  - Miosis [Recovered/Resolved]
  - Brain injury [Recovered/Resolved]
  - Dysarthria [Recovered/Resolved]
  - Disorientation [Recovered/Resolved]
  - Memory impairment [Recovered/Resolved]
  - Overdose [Unknown]
